FAERS Safety Report 17116752 (Version 1)
Quarter: 2019Q4

REPORT INFORMATION
  Report Type: Spontaneous
  Country: GB (occurrence: US)
  Receive Date: 20191205
  Receipt Date: 20191205
  Transmission Date: 20200122
  Serious: No
  Sender: FDA-Public Use
  Company Number: US-ASTELLAS-2019US031451

PATIENT

DRUGS (1)
  1. TARCEVA [Suspect]
     Active Substance: ERLOTINIB HYDROCHLORIDE
     Indication: VULVAL CANCER
     Route: 048
     Dates: start: 20190501

REACTIONS (3)
  - Off label use [Unknown]
  - Rash [Unknown]
  - Intentional product use issue [Unknown]
